FAERS Safety Report 9690537 (Version 1)
Quarter: 2013Q4

REPORT INFORMATION
  Report Type: Spontaneous
  Country: US (occurrence: None)
  Receive Date: 20131114
  Receipt Date: 20131114
  Transmission Date: 20140711
  Serious: Yes (Hospitalization, Other)
  Sender: FDA-Public Use
  Company Number: None

PATIENT
  Age: 43 Year
  Sex: Female
  Weight: 63.5 kg

DRUGS (1)
  1. BACTRIM 800/160MG [Suspect]
     Dosage: 1 PILL BID
     Route: 048
     Dates: start: 20131031, end: 20131102

REACTIONS (10)
  - Hepatic enzyme increased [None]
  - Musculoskeletal chest pain [None]
  - Neck pain [None]
  - Headache [None]
  - Rash [None]
  - Feeling hot [None]
  - Memory impairment [None]
  - Muscular weakness [None]
  - Muscular weakness [None]
  - Urinary tract infection [None]
